FAERS Safety Report 25979694 (Version 1)
Quarter: 2025Q4

REPORT INFORMATION
  Report Type: Spontaneous
  Country: EU (occurrence: EU)
  Receive Date: 20251030
  Receipt Date: 20251030
  Transmission Date: 20260119
  Serious: Yes (Other)
  Sender: ABBVIE
  Company Number: EU-ABBVIE-6523516

PATIENT
  Age: 49 Year
  Sex: Male

DRUGS (1)
  1. SKYRIZI [Suspect]
     Active Substance: RISANKIZUMAB-RZAA
     Indication: Psoriasis
     Dosage: FORM STRENGTH - 150MG, DOSAGE FORM PEN
     Route: 058
     Dates: start: 20240122

REACTIONS (1)
  - Testis cancer [Recovering/Resolving]
